FAERS Safety Report 7200887-3 (Version None)
Quarter: 2010Q4

REPORT INFORMATION
  Report Type: 
  Country: None (occurrence: None)
  Receive Date: 20101228
  Receipt Date: 20101224
  Transmission Date: 20110411
  Serious: Yes (Death)
  Sender: FDA-Public Use
  Company Number: JP-ABBOTT-10P-087-0693326-00

PATIENT
  Sex: Male
  Weight: 71 kg

DRUGS (6)
  1. HUMIRA [Suspect]
     Indication: PSORIASIS
     Route: 058
     Dates: start: 20100714
  2. MAXACALCITOL [Concomitant]
     Indication: PSORIASIS
     Route: 062
  3. MAXACALCITOL [Concomitant]
     Route: 062
  4. TACALCITOL HYDRATE [Concomitant]
     Indication: PSORIASIS
     Route: 062
  5. EPINASTINE HYDROCHLORIDE [Concomitant]
     Indication: PSORIASIS
     Route: 048
  6. BETAMETHASONE BUTYRATE PROPIONATE [Concomitant]
     Indication: PSORIASIS
     Route: 062

REACTIONS (2)
  - BRAIN CONTUSION [None]
  - SPLENIC RUPTURE [None]
